FAERS Safety Report 5713573-3 (Version None)
Quarter: 2008Q2

REPORT INFORMATION
  Report Type: 
  Country: None (occurrence: None)
  Receive Date: 20080422
  Receipt Date: 20080410
  Transmission Date: 20081010
  Serious: Yes (Other)
  Sender: FDA-Public Use
  Company Number: FR-ELI_LILLY_AND_COMPANY-FR200803004849

PATIENT
  Age: 82 Year
  Sex: Female

DRUGS (3)
  1. CYMBALTA [Suspect]
     Dosage: 60 MG, DAILY (1/D)
     Route: 048
     Dates: start: 20080218, end: 20080317
  2. DEPAMIDE [Concomitant]
     Dosage: 300 MG, DAILY (1/D)
     Route: 048
     Dates: end: 20080317
  3. LUDIOMIL                                /SCH/ [Concomitant]
     Dosage: 1 D/F, DAILY (1/D)
     Route: 065

REACTIONS (1)
  - HEPATOCELLULAR INJURY [None]
